FAERS Safety Report 19849353 (Version 1)
Quarter: 2021Q3

REPORT INFORMATION
  Report Type: Other
  Country: CN (occurrence: CN)
  Receive Date: 20210917
  Receipt Date: 20210917
  Transmission Date: 20211014
  Serious: Yes (Other)
  Sender: FDA-Public Use
  Company Number: CN-ROCHE-2907233

PATIENT
  Age: 38 Year
  Sex: Female

DRUGS (19)
  1. IRINOTECAN [Concomitant]
     Active Substance: IRINOTECAN
  2. BEVACIZUMAB. [Suspect]
     Active Substance: BEVACIZUMAB
     Dosage: DAY1
     Route: 065
     Dates: start: 20190522, end: 20190829
  3. CAPECITABINE. [Suspect]
     Active Substance: CAPECITABINE
     Dosage: DAY1?14
     Route: 048
     Dates: start: 202009, end: 202102
  4. REGORAFENIB. [Concomitant]
     Active Substance: REGORAFENIB
     Indication: COLON CANCER
     Dosage: DAY1?21
     Route: 065
     Dates: start: 202005, end: 202008
  5. REGORAFENIB. [Concomitant]
     Active Substance: REGORAFENIB
     Dosage: DAY1?21
     Route: 065
     Dates: start: 202009, end: 202102
  6. CALCIUM FOLINATE [Concomitant]
     Active Substance: LEUCOVORIN CALCIUM
     Indication: COLON CANCER
     Dates: start: 20160822, end: 20170214
  7. IRINOTECAN [Concomitant]
     Active Substance: IRINOTECAN
     Indication: COLON CANCER
     Dates: start: 20170912, end: 20180209
  8. IRINOTECAN [Concomitant]
     Active Substance: IRINOTECAN
     Dates: start: 20190522, end: 20190829
  9. CAPECITABINE. [Suspect]
     Active Substance: CAPECITABINE
     Dosage: DAY1?14
     Route: 048
     Dates: start: 20190916, end: 20200113
  10. OXALIPLATIN. [Suspect]
     Active Substance: OXALIPLATIN
     Indication: COLON CANCER
     Dosage: DAY1
     Route: 065
     Dates: start: 20190508
  11. CAPECITABINE. [Suspect]
     Active Substance: CAPECITABINE
     Indication: COLON CANCER
     Dosage: DAY1?14
     Route: 048
     Dates: start: 201805, end: 201904
  12. 5?FLUOROURACIL [Concomitant]
     Active Substance: FLUOROURACIL
     Indication: COLON CANCER
     Route: 042
     Dates: start: 20160822, end: 20170214
  13. 5?FLUOROURACIL [Concomitant]
     Active Substance: FLUOROURACIL
     Route: 041
     Dates: start: 20160822, end: 20170214
  14. BEVACIZUMAB. [Suspect]
     Active Substance: BEVACIZUMAB
     Indication: COLON CANCER
     Dosage: DAY1
     Route: 065
     Dates: start: 20190508
  15. BEVACIZUMAB. [Suspect]
     Active Substance: BEVACIZUMAB
     Dosage: DAY1
     Route: 065
     Dates: start: 20190916, end: 20200113
  16. RALTITREXED [Suspect]
     Active Substance: RALTITREXED
     Dosage: DAY1
     Route: 065
     Dates: start: 20190522, end: 20190829
  17. RALTITREXED [Suspect]
     Active Substance: RALTITREXED
     Indication: COLON CANCER
     Dosage: DAY1
     Route: 065
     Dates: start: 20190508
  18. CALCIUM FOLINATE [Concomitant]
     Active Substance: LEUCOVORIN CALCIUM
     Dates: start: 20170912, end: 20180209
  19. 5?FLUOROURACIL [Concomitant]
     Active Substance: FLUOROURACIL
     Dates: start: 20170912, end: 20180209

REACTIONS (3)
  - Hyperpyrexia [Unknown]
  - Myelosuppression [Unknown]
  - Hepatic function abnormal [Unknown]

NARRATIVE: CASE EVENT DATE: 2019
